FAERS Safety Report 4613468-2 (Version None)
Quarter: 2005Q1

REPORT INFORMATION
  Report Type: 
  Country: None (occurrence: None)
  Receive Date: 20050317
  Receipt Date: 20050317
  Transmission Date: 20050727
  Serious: Yes (Hospitalization, Other)
  Sender: FDA-Public Use
  Company Number: None

PATIENT
  Sex: Male
  Weight: 100 kg

DRUGS (9)
  1. OXALIPLATIN [Suspect]
     Dosage: 85MG/M2 IV DAY 1
     Route: 042
     Dates: start: 20050119, end: 20050202
  2. LEUCOVORIN CALCIUM [Suspect]
     Dosage: 400MG/M2 IV DAY 1
     Route: 042
     Dates: start: 20050119, end: 20050216
  3. FLUOROURACIL [Suspect]
     Dosage: SEE IMAGE
     Route: 042
     Dates: start: 20050119, end: 20050216
  4. DARVOCET [Concomitant]
  5. MOTRIN [Concomitant]
  6. OXYCONTIN [Concomitant]
  7. PROCHLORPERAZINE [Concomitant]
  8. PROTONIX [Concomitant]
  9. VICODIN [Concomitant]

REACTIONS (5)
  - ABDOMINAL PAIN [None]
  - HAEMOGLOBIN DECREASED [None]
  - INTESTINAL OBSTRUCTION [None]
  - METASTASES TO ABDOMINAL CAVITY [None]
  - RECTAL HAEMORRHAGE [None]
